FAERS Safety Report 18762914 (Version 2)
Quarter: 2021Q1

REPORT INFORMATION
  Report Type: Spontaneous
  Country: GB (occurrence: GB)
  Receive Date: 20210120
  Receipt Date: 20210205
  Transmission Date: 20210419
  Serious: Yes (Other)
  Sender: FDA-Public Use
  Company Number: GB-MYLANLABS-2021M1002362

PATIENT
  Age: 20 Year
  Sex: Female
  Weight: 70 kg

DRUGS (1)
  1. MIRTAZAPINE. [Suspect]
     Active Substance: MIRTAZAPINE
     Indication: ANXIETY
     Dosage: 15 MILLIGRAM
     Route: 048
     Dates: start: 20200930

REACTIONS (3)
  - Weight loss poor [Not Recovered/Not Resolved]
  - Libido increased [Recovered/Resolved with Sequelae]
  - Orgasm abnormal [Unknown]

NARRATIVE: CASE EVENT DATE: 20201001
